FAERS Safety Report 12983171 (Version 1)
Quarter: 2016Q4

REPORT INFORMATION
  Report Type: Spontaneous
  Country: GB (occurrence: GB)
  Receive Date: 20161129
  Receipt Date: 20161129
  Transmission Date: 20170207
  Serious: Yes (Other)
  Sender: FDA-Public Use
  Company Number: GB-INCYTE CORPORATION-2016IN007526

PATIENT
  Age: 51 Year
  Sex: Male

DRUGS (5)
  1. JAKAVI [Suspect]
     Active Substance: RUXOLITINIB
     Dosage: 10 MG, BID
     Route: 065
  2. JAKAVI [Suspect]
     Active Substance: RUXOLITINIB
     Dosage: 15 MG, BID
     Route: 065
  3. JAKAVI [Suspect]
     Active Substance: RUXOLITINIB
     Dosage: 20 MG, BID
     Route: 065
     Dates: start: 201503
  4. JAKAVI [Suspect]
     Active Substance: RUXOLITINIB
     Dosage: 15 MG, QD
     Route: 065
     Dates: start: 201505
  5. JAKAVI [Suspect]
     Active Substance: RUXOLITINIB
     Indication: MYELOFIBROSIS
     Dosage: 5 MG, BID
     Route: 065

REACTIONS (13)
  - Bone pain [Not Recovered/Not Resolved]
  - Lymphadenopathy [Unknown]
  - Platelet count decreased [Unknown]
  - Hyperhidrosis [Recovering/Resolving]
  - Paraesthesia [Unknown]
  - Chronic graft versus host disease [Unknown]
  - Haemoglobin decreased [Unknown]
  - Acute myeloid leukaemia [Unknown]
  - Cytomegalovirus infection [Unknown]
  - Aplasia [Unknown]
  - Fatigue [Not Recovered/Not Resolved]
  - Pruritus [Recovering/Resolving]
  - Headache [Not Recovered/Not Resolved]
